FAERS Safety Report 8381819-1 (Version None)
Quarter: 2012Q2

REPORT INFORMATION
  Report Type: 
  Country: None (occurrence: None)
  Receive Date: 20120522
  Receipt Date: 20120508
  Transmission Date: 20120825
  Serious: Yes (Other)
  Sender: FDA-Public Use
  Company Number: JPI-P-020820

PATIENT
  Age: 40 Year
  Sex: Female
  Weight: 86.637 kg

DRUGS (8)
  1. VILAZODONE HYDROCHLROIDE [Concomitant]
  2. ARIPIPRAZOLE [Concomitant]
  3. HYDROCHLOROTHIAZIDE [Concomitant]
  4. OLMESARTAN MEDOXOMIL [Concomitant]
  5. XYREM [Suspect]
     Indication: SOMNOLENCE
     Dosage: 4.5 GM (2.25 GM, 2 IN 1 D), ORAL 9 GM (4.5 GM, 2 IN 1 D), ORAL 8 GM (4 GM, 2 IN 1 D), ORAL
     Route: 048
     Dates: start: 20120322
  6. XYREM [Suspect]
     Indication: CATAPLEXY
     Dosage: 4.5 GM (2.25 GM, 2 IN 1 D), ORAL 9 GM (4.5 GM, 2 IN 1 D), ORAL 8 GM (4 GM, 2 IN 1 D), ORAL
     Route: 048
     Dates: start: 20120322
  7. XYREM [Suspect]
     Indication: SOMNOLENCE
     Dosage: 4.5 GM (2.25 GM, 2 IN 1 D), ORAL 9 GM (4.5 GM, 2 IN 1 D), ORAL 8 GM (4 GM, 2 IN 1 D), ORAL
     Route: 048
     Dates: start: 20120302
  8. XYREM [Suspect]
     Indication: CATAPLEXY
     Dosage: 4.5 GM (2.25 GM, 2 IN 1 D), ORAL 9 GM (4.5 GM, 2 IN 1 D), ORAL 8 GM (4 GM, 2 IN 1 D), ORAL
     Route: 048
     Dates: start: 20120302

REACTIONS (6)
  - BLOOD URINE PRESENT [None]
  - FATIGUE [None]
  - INSOMNIA [None]
  - DYSGEUSIA [None]
  - SOMNOLENCE [None]
  - DISTURBANCE IN ATTENTION [None]
